FAERS Safety Report 4114994 (Version 2)
Quarter: 2015Q1

REPORT INFORMATION
  Report Type: Spontaneous
  Country: IT (occurrence: None)
  Receive Date: 20040319
  Receipt Date: 20150218
  Transmission Date: 20150721
  Serious: Yes (Hospitalization, Other)
  Sender: FDA-Public Use
  Company Number: 2004EU000577

PATIENT
  Age: 17 Year
  Sex: Female

DRUGS (7)
  1. AZATHIOPRINE. [Concomitant]
     Active Substance: AZATHIOPRINE
  2. FOLATE [Concomitant]
     Active Substance: FOLATE SODIUM
  3. TACROLIMUS. [Suspect]
     Active Substance: TACROLIMUS
     Indication: LIVER TRANSPLANT
     Dosage: 0.15 MG/KG, BID
     Dates: start: 200010, end: 200104
  4. UNSPECIFIED INGREDIENT [Concomitant]
     Active Substance: UNSPECIFIED INGREDIENT
  5. GANCICLOVIR SODIUM [Concomitant]
     Active Substance: GANCICLOVIR SODIUM
  6. PYRIMETHAMINE [Concomitant]
     Active Substance: PYRIMETHAMINE
  7. SULFADIAZINE. [Concomitant]
     Active Substance: SULFADIAZINE

REACTIONS (6)
  - Thrombocytopenia [None]
  - Normochromic normocytic anaemia [None]
  - Reticulocyte count decreased [None]
  - Neutropenia [None]
  - Anaemia [None]
  - Bone marrow failure [None]

NARRATIVE: CASE EVENT DATE: 200011
